FAERS Safety Report 17499285 (Version 3)
Quarter: 2021Q3

REPORT INFORMATION
  Report Type: Report from Study
  Country: IT (occurrence: IT)
  Receive Date: 20200304
  Receipt Date: 20210909
  Transmission Date: 20211014
  Serious: Yes (Death, Hospitalization, Other)
  Sender: FDA-Public Use
  Company Number: IT-INCYTE CORPORATION-2020IN001704

PATIENT

DRUGS (11)
  1. CYTARABIN [Concomitant]
     Active Substance: CYTARABINE
     Dosage: 50 MG (4 DAYS)
     Route: 058
     Dates: start: 20181108
  2. CYTARABIN [Concomitant]
     Active Substance: CYTARABINE
     Dosage: 50 MG (4 DAYS)
     Route: 058
     Dates: start: 20181109
  3. EXJADE [Concomitant]
     Active Substance: DEFERASIROX
     Indication: PRODUCT USED FOR UNKNOWN INDICATION
     Dosage: 3 DF, QD
     Route: 065
  4. SPIRONOLACTONE. [Concomitant]
     Active Substance: SPIRONOLACTONE
     Indication: PRODUCT USED FOR UNKNOWN INDICATION
     Dosage: 2 DF, QD
     Route: 065
  5. CYTARABIN [Concomitant]
     Active Substance: CYTARABINE
     Indication: MYELOFIBROSIS
     Dosage: 50 MG (4 DAYS)
     Route: 058
     Dates: start: 20181012
  6. FUROSEMIDE. [Concomitant]
     Active Substance: FUROSEMIDE
     Indication: PRODUCT USED FOR UNKNOWN INDICATION
     Dosage: 2 DF, QD
     Route: 065
     Dates: start: 20180516
  7. ALLOPURINOL. [Concomitant]
     Active Substance: ALLOPURINOL
     Indication: PRODUCT USED FOR UNKNOWN INDICATION
     Dosage: 1 DF, QD
     Route: 065
  8. HYDROXYUREA. [Concomitant]
     Active Substance: HYDROXYUREA
     Indication: PRODUCT USED FOR UNKNOWN INDICATION
     Dosage: 2 DF, QD
     Route: 065
  9. BUSULFAN. [Concomitant]
     Active Substance: BUSULFAN
     Indication: MYELOFIBROSIS
     Dosage: 2 TO 8  MG, QD
     Route: 048
     Dates: start: 20181122, end: 20190815
  10. JAKAVI [Suspect]
     Active Substance: RUXOLITINIB
     Indication: MYELOFIBROSIS
     Dosage: 30 UNK
     Route: 065
     Dates: start: 20170822
  11. CYTARABIN [Concomitant]
     Active Substance: CYTARABINE
     Dosage: 50 MG (4 DAYS)
     Route: 058
     Dates: start: 20181013

REACTIONS (18)
  - Gastrointestinal haemorrhage [Unknown]
  - Fatigue [Unknown]
  - Hepatomegaly [Unknown]
  - Oedema peripheral [Unknown]
  - Hypotension [Unknown]
  - General physical health deterioration [Unknown]
  - Blood lactate dehydrogenase increased [Unknown]
  - Prothrombin time prolonged [Unknown]
  - Gamma-glutamyltransferase increased [Unknown]
  - Dyspnoea [Fatal]
  - Alanine aminotransferase increased [Unknown]
  - Liver disorder [Unknown]
  - Blood cholinesterase decreased [Unknown]
  - Splenomegaly [Recovered/Resolved]
  - Blood albumin decreased [Unknown]
  - Ascites [Unknown]
  - Effusion [Unknown]
  - Small intestinal haemorrhage [Fatal]

NARRATIVE: CASE EVENT DATE: 20180827
